FAERS Safety Report 4901260-0 (Version None)
Quarter: 2006Q1

REPORT INFORMATION
  Report Type: 
  Country: None (occurrence: None)
  Receive Date: 20060206
  Receipt Date: 20060111
  Transmission Date: 20060701
  Serious: Yes (Other)
  Sender: FDA-Public Use
  Company Number: PHBS2006BE00851

PATIENT
  Age: 66 Year
  Sex: Male
  Weight: 70 kg

DRUGS (8)
  1. SIMULECT [Suspect]
     Indication: LIVER TRANSPLANT
     Dosage: 20 MG, ONCE/SINGLE
     Route: 065
     Dates: start: 20051231, end: 20051231
  2. SIMULECT [Suspect]
     Dosage: 20 MG, ONCE/SINGLE
     Route: 065
     Dates: start: 20060104, end: 20060104
  3. CELLCEPT [Concomitant]
  4. ASAFLOW [Concomitant]
  5. SANDIMMUNE [Suspect]
     Indication: LIVER TRANSPLANT
     Dosage: 100 MG, BID
     Route: 048
     Dates: start: 20060102, end: 20060107
  6. TARGOCID [Concomitant]
     Dates: start: 20051231, end: 20060102
  7. TEMOCILLIN [Concomitant]
     Dates: start: 20051231, end: 20060102
  8. DIFLUCAN [Concomitant]
     Dates: start: 20051231, end: 20060102

REACTIONS (14)
  - BRADYPHRENIA [None]
  - BREATH SOUNDS ABNORMAL [None]
  - COMA [None]
  - ELECTROENCEPHALOGRAM ABNORMAL [None]
  - ENCEPHALOPATHY [None]
  - EYE SWELLING [None]
  - IDIOSYNCRATIC DRUG REACTION [None]
  - NECK PAIN [None]
  - NUCHAL RIGIDITY [None]
  - PNEUMONIA [None]
  - RENAL FAILURE [None]
  - SOMNOLENCE [None]
  - STUPOR [None]
  - SWELLING FACE [None]
